FAERS Safety Report 21517509 (Version 3)
Quarter: 2025Q4

REPORT INFORMATION
  Report Type: Report from Study
  Country: US (occurrence: US)
  Receive Date: 20221028
  Receipt Date: 20251221
  Transmission Date: 20260118
  Serious: Yes (Hospitalization, Other)
  Sender: ABBVIE
  Company Number: US-ABBVIE-4177545

PATIENT
  Sex: Male
  Weight: 71.213 kg

DRUGS (3)
  1. CREON [Suspect]
     Active Substance: PANCRELIPASE AMYLASE\PANCRELIPASE LIPASE\PANCRELIPASE PROTEASE
     Indication: Abdominal pain upper
     Dosage: FREQUENCY: 2 BEFORE EACH MEALS
     Route: 048
     Dates: end: 202201
  2. CREON [Suspect]
     Active Substance: PANCRELIPASE AMYLASE\PANCRELIPASE LIPASE\PANCRELIPASE PROTEASE
     Indication: Abdominal pain upper
     Dosage: FREQUENCY: 2 BEFORE EACH MEALS??START DATE TEXT: -MAY-2022 OR  -JUN-2022
     Route: 048
  3. CREON [Suspect]
     Active Substance: PANCRELIPASE AMYLASE\PANCRELIPASE LIPASE\PANCRELIPASE PROTEASE
     Indication: Abdominal pain upper
     Route: 048

REACTIONS (19)
  - Pneumothorax [Recovering/Resolving]
  - Weight decreased [Recovering/Resolving]
  - Back disorder [Recovering/Resolving]
  - Postoperative wound infection [Recovered/Resolved]
  - Mouth swelling [Recovered/Resolved]
  - Lip swelling [Recovered/Resolved]
  - Gait disturbance [Recovering/Resolving]
  - Fall [Recovered/Resolved]
  - Surgical failure [Recovering/Resolving]
  - Hypophagia [Recovering/Resolving]
  - Abdominal pain upper [Recovering/Resolving]
  - Oesophageal rupture [Recovered/Resolved]
  - Postoperative wound complication [Recovering/Resolving]
  - Procedural pain [Recovering/Resolving]
  - Post procedural swelling [Recovering/Resolving]
  - Small intestinal resection [Recovered/Resolved]
  - Pain in extremity [Unknown]
  - Cholecystectomy [Recovered/Resolved]
  - Gastrectomy [Recovered/Resolved]

NARRATIVE: CASE EVENT DATE: 20200101
